FAERS Safety Report 7480515-2 (Version None)
Quarter: 2011Q2

REPORT INFORMATION
  Report Type: 
  Country: None (occurrence: None)
  Receive Date: 20110516
  Receipt Date: 20110503
  Transmission Date: 20111010
  Serious: No
  Sender: FDA-Public Use
  Company Number: FR-JNJFOC-20110501961

PATIENT
  Age: 51 Year
  Sex: Female

DRUGS (2)
  1. ACTISKENAN [Concomitant]
     Indication: PRODUCT USED FOR UNKNOWN INDICATION
     Route: 065
  2. DURAGESIC-100 [Suspect]
     Indication: PAIN
     Route: 062

REACTIONS (2)
  - INCORRECT DOSE ADMINISTERED [None]
  - PRODUCT ADHESION ISSUE [None]
